FAERS Safety Report 10021536 (Version 1)
Quarter: 2014Q1

REPORT INFORMATION
  Report Type: Spontaneous
  Country: US (occurrence: None)
  Receive Date: 20140318
  Receipt Date: 20140318
  Transmission Date: 20141002
  Serious: Yes (Other)
  Sender: FDA-Public Use
  Company Number: None

PATIENT
  Age: 31 Year
  Sex: Female
  Weight: 53.52 kg

DRUGS (1)
  1. DULOXETINE 60MG CITRON [Suspect]
     Indication: MAJOR DEPRESSION
     Dosage: 1 PILL, ONCE DAILY, TAKEN BY MOUTH
     Route: 048
     Dates: start: 20140204, end: 20140306

REACTIONS (12)
  - Therapy change [None]
  - Headache [None]
  - Gastrointestinal disorder [None]
  - Product substitution issue [None]
  - Product quality issue [None]
  - Depression [None]
  - Disease recurrence [None]
  - Suicidal behaviour [None]
  - Anger [None]
  - Tremor [None]
  - Dizziness [None]
  - Decreased appetite [None]
